FAERS Safety Report 8932648 (Version 2)
Quarter: 2013Q1

REPORT INFORMATION
  Report Type: Report from Study
  Country: CA (occurrence: CA)
  Receive Date: 20121129
  Receipt Date: 20130122
  Transmission Date: 20140127
  Serious: Yes (Hospitalization)
  Sender: FDA-Public Use
  Company Number: CA-JNJFOC-20121111285

PATIENT
  Age: 43 Year
  Sex: Female
  Weight: 56 kg

DRUGS (3)
  1. REMICADE [Suspect]
     Indication: COLITIS ULCERATIVE
     Route: 042
  2. REMICADE [Suspect]
     Indication: COLITIS ULCERATIVE
     Route: 042
     Dates: start: 20120221, end: 20130110
  3. HYDROCORTISONE [Concomitant]
     Indication: PREMEDICATION
     Route: 042

REACTIONS (1)
  - Intestinal operation [Unknown]
